FAERS Safety Report 17788020 (Version 3)
Quarter: 2020Q2

REPORT INFORMATION
  Report Type: Report from Study
  Country: CO (occurrence: CO)
  Receive Date: 20200514
  Receipt Date: 20200626
  Transmission Date: 20200714
  Serious: Yes (Life-Threatening, Hospitalization)
  Sender: FDA-Public Use
  Company Number: NVSC2020CO129878

PATIENT
  Age: 15 Year
  Sex: Male
  Weight: 31 kg

DRUGS (5)
  1. CALCIUM [Concomitant]
     Active Substance: CALCIUM
     Indication: BARTTER^S SYNDROME
     Dosage: 2 DF, Q12H
     Route: 048
     Dates: start: 2007
  2. SPIRONOLACTONE. [Concomitant]
     Active Substance: SPIRONOLACTONE
     Indication: BARTTER^S SYNDROME
     Dosage: 25 MG, Q12H
     Route: 048
     Dates: start: 2007
  3. POTASSIUM CITRATE. [Concomitant]
     Active Substance: POTASSIUM CITRATE
     Indication: BARTTER^S SYNDROME
     Dosage: 2 DF, Q12H
     Route: 048
     Dates: start: 2007
  4. OMNITROPE [Suspect]
     Active Substance: SOMATROPIN
     Indication: GROWTH HORMONE DEFICIENCY
     Dosage: 1.4 MG, QD
     Route: 058
     Dates: start: 20181008, end: 20191214
  5. INDOMETHACIN. [Concomitant]
     Active Substance: INDOMETHACIN
     Indication: BARTTER^S SYNDROME
     Dosage: 25 MG, Q12H
     Route: 048
     Dates: start: 2007

REACTIONS (3)
  - Blood electrolytes decreased [Unknown]
  - Laboratory test abnormal [Unknown]
  - Blood potassium decreased [Unknown]

NARRATIVE: CASE EVENT DATE: 20200505
